FAERS Safety Report 25567724 (Version 1)
Quarter: 2025Q3

REPORT INFORMATION
  Report Type: Spontaneous
  Country: EU (occurrence: EU)
  Receive Date: 20250716
  Receipt Date: 20250716
  Transmission Date: 20251020
  Serious: Yes (Death, Life-Threatening, Other)
  Sender: PFIZER
  Company Number: EU-PFIZER INC-PV202500083228

PATIENT
  Age: 33 Year
  Sex: Male

DRUGS (8)
  1. MEROPENEM [Suspect]
     Active Substance: MEROPENEM
     Indication: Disseminated mycobacterium avium complex infection
  2. LINEZOLID [Suspect]
     Active Substance: LINEZOLID
     Indication: Disseminated mycobacterium avium complex infection
  3. CEFTRIAXONE [Suspect]
     Active Substance: CEFTRIAXONE
     Indication: Disseminated mycobacterium avium complex infection
  4. CLOFAZIMINE [Suspect]
     Active Substance: CLOFAZIMINE
     Indication: Disseminated mycobacterium avium complex infection
  5. ISONIAZID [Suspect]
     Active Substance: ISONIAZID
     Indication: Disseminated mycobacterium avium complex infection
  6. CYCLOSERINE [Suspect]
     Active Substance: CYCLOSERINE
     Indication: Disseminated mycobacterium avium complex infection
  7. BEDAQUILINE [Suspect]
     Active Substance: BEDAQUILINE
     Indication: Disseminated mycobacterium avium complex infection
  8. PRETOMANID [Suspect]
     Active Substance: PRETOMANID
     Indication: Disseminated mycobacterium avium complex infection

REACTIONS (1)
  - Sepsis [Fatal]
